FAERS Safety Report 6191572-8 (Version None)
Quarter: 2009Q2

REPORT INFORMATION
  Report Type: 
  Country: None (occurrence: None)
  Receive Date: 20090515
  Receipt Date: 20090408
  Transmission Date: 20091009
  Serious: Yes (Hospitalization)
  Sender: FDA-Public Use
  Company Number: SE-ROCHE-632045

PATIENT
  Sex: Female
  Weight: 66 kg

DRUGS (2)
  1. MYCOPHENOLATE MOFETIL [Suspect]
     Indication: ANTI-NEUTROPHIL CYTOPLASMIC ANTIBODY POSITIVE VASCULITIS
     Dosage: DOSE: 750 MGX2
     Route: 065
     Dates: start: 20090204
  2. MYCOPHENOLATE MOFETIL [Suspect]
     Route: 065
     Dates: start: 20090303

REACTIONS (2)
  - AZOTAEMIA [None]
  - RENAL IMPAIRMENT [None]
